FAERS Safety Report 7815363-4 (Version None)
Quarter: 2011Q4

REPORT INFORMATION
  Report Type: 
  Country: None (occurrence: None)
  Receive Date: 20111014
  Receipt Date: 20111010
  Transmission Date: 20120403
  Serious: Yes (Hospitalization, Disabling)
  Sender: FDA-Public Use
  Company Number: US-MERCK-1103USA01910

PATIENT
  Age: 56 Year
  Sex: Female
  Weight: 85 kg

DRUGS (8)
  1. FOSAMAX [Suspect]
     Dosage: ^TAKE 1/2 OF A 70 MG TAB WEEKLY^
     Route: 048
     Dates: start: 20021022
  2. FOSAMAX [Suspect]
     Route: 048
     Dates: start: 20001005
  3. FOSAMAX [Suspect]
     Dosage: ^TAKE 1/2 OF A 70 MG TAB WEEKLY^
     Route: 048
     Dates: start: 20021022
  4. FOSAMAX [Suspect]
     Route: 048
     Dates: start: 20001005
  5. CALCIUM (UNSPECIFIED) [Concomitant]
     Route: 065
  6. FOSAMAX [Suspect]
     Indication: OSTEOPOROSIS PROPHYLAXIS
     Route: 048
     Dates: start: 20020101
  7. ALENDRONATE SODIUM [Suspect]
     Route: 048
     Dates: start: 20081103, end: 20091001
  8. FOSAMAX [Suspect]
     Indication: OSTEOPOROSIS
     Route: 048
     Dates: start: 20020101

REACTIONS (32)
  - SUBCUTANEOUS ABSCESS [None]
  - BRONCHOPNEUMONIA [None]
  - DIZZINESS [None]
  - LOW TURNOVER OSTEOPATHY [None]
  - LEUKOCYTOSIS [None]
  - LETHARGY [None]
  - INFECTION [None]
  - BONE PAIN [None]
  - SKIN DISORDER [None]
  - DRUG ADMINISTRATION ERROR [None]
  - ASTHENIA [None]
  - DYSPNOEA EXERTIONAL [None]
  - FEMUR FRACTURE [None]
  - BALANCE DISORDER [None]
  - LACERATION [None]
  - GAIT DISTURBANCE [None]
  - VITAMIN D DEFICIENCY [None]
  - OSTEOARTHRITIS [None]
  - SINUS TACHYCARDIA [None]
  - COLONIC POLYP [None]
  - ECZEMA [None]
  - JOINT DISLOCATION [None]
  - DISABILITY [None]
  - MUSCULAR WEAKNESS [None]
  - INCORRECT DOSE ADMINISTERED [None]
  - MYALGIA [None]
  - BRONCHITIS [None]
  - PYREXIA [None]
  - LABYRINTHITIS [None]
  - C-REACTIVE PROTEIN INCREASED [None]
  - DEHYDRATION [None]
  - NAUSEA [None]
